FAERS Safety Report 9179652 (Version 1)
Quarter: 2012Q4

REPORT INFORMATION
  Report Type: 
  Country: US (occurrence: US)
  Receive Date: 20121029
  Receipt Date: 20121029
  Transmission Date: 20130627
  Serious: Yes (Hospitalization, Other)
  Sender: FDA-Public Use
  Company Number: US-SANOFI-AVENTIS-2012SA076247

PATIENT
  Sex: Female

DRUGS (2)
  1. APIDRA SOLOSTAR [Suspect]
     Indication: DIABETES
     Route: 058
  2. SOLOSTAR [Suspect]
     Indication: DIABETES

REACTIONS (4)
  - Diabetic ketoacidosis [Recovered/Resolved]
  - Loss of consciousness [Unknown]
  - Hypotension [Not Recovered/Not Resolved]
  - Heart rate increased [Not Recovered/Not Resolved]
